FAERS Safety Report 11281769 (Version 5)
Quarter: 2017Q2

REPORT INFORMATION
  Report Type: Report from Study
  Country: US (occurrence: US)
  Receive Date: 20150717
  Receipt Date: 20170418
  Transmission Date: 20170829
  Serious: Yes (Hospitalization)
  Sender: FDA-Public Use
  Company Number: US-ACTELION-A-NJ2015-121006

PATIENT
  Age: 49 Year
  Sex: Female
  Weight: 117.91 kg

DRUGS (1)
  1. TRACLEER [Suspect]
     Active Substance: BOSENTAN
     Indication: PULMONARY ARTERIAL HYPERTENSION
     Dosage: 125 MG, BID
     Route: 048

REACTIONS (12)
  - Cardiac flutter [Unknown]
  - Oesophageal haemorrhage [Unknown]
  - Haemoptysis [Unknown]
  - Hypertension [Unknown]
  - Kidney infection [Unknown]
  - Lung disorder [Unknown]
  - Pulmonary haemorrhage [Unknown]
  - Palpitations [Unknown]
  - Sepsis [Unknown]
  - Dizziness [Unknown]
  - Asthenia [Unknown]
  - Dyspnoea [Unknown]
